FAERS Safety Report 5190103-9 (Version None)
Quarter: 2006Q4

REPORT INFORMATION
  Report Type: 
  Country: None (occurrence: None)
  Receive Date: 20061222
  Receipt Date: 20061212
  Transmission Date: 20070319
  Serious: Yes (Other)
  Sender: FDA-Public Use
  Company Number: FR-JNJFOC-20061103893

PATIENT
  Age: 5 Month
  Sex: Male

DRUGS (2)
  1. OFLOCET [Suspect]
     Indication: DRUG EXPOSURE VIA BREAST MILK
     Route: 063
  2. GENTAMICIN [Concomitant]
     Indication: DRUG EXPOSURE VIA BREAST MILK
     Route: 063

REACTIONS (2)
  - DRUG EXPOSURE VIA BREAST MILK [None]
  - HIP DYSPLASIA [None]
